FAERS Safety Report 21989403 (Version 1)
Quarter: 2023Q1

REPORT INFORMATION
  Report Type: Spontaneous
  Country: US (occurrence: US)
  Receive Date: 20230214
  Receipt Date: 20230214
  Transmission Date: 20230417
  Serious: Yes (Other)
  Sender: FDA-Public Use
  Company Number: US-Melinta Therapeutics, LLC-US-MLNT-23-00160

PATIENT
  Sex: Male

DRUGS (3)
  1. KIMYRSA [Suspect]
     Active Substance: ORITAVANCIN DIPHOSPHATE
     Indication: Product used for unknown indication
     Dosage: NOT PROVIDED.
     Route: 041
  2. KIMYRSA [Suspect]
     Active Substance: ORITAVANCIN DIPHOSPHATE
     Dosage: ONLY FEW CC^S
     Route: 041
     Dates: start: 20230130, end: 20230130
  3. KIMYRSA [Suspect]
     Active Substance: ORITAVANCIN DIPHOSPHATE
     Dosage: ABOUT HALF DOSE
     Route: 041
     Dates: start: 20230201, end: 20230201

REACTIONS (10)
  - Unresponsive to stimuli [Unknown]
  - Loss of consciousness [Unknown]
  - Head injury [Unknown]
  - Feeling cold [Unknown]
  - Blood pressure decreased [Unknown]
  - Vomiting [Unknown]
  - Pyrexia [Unknown]
  - Nausea [Unknown]
  - Tremor [Unknown]
  - Multiple use of single-use product [Unknown]

NARRATIVE: CASE EVENT DATE: 20230130
